FAERS Safety Report 16175088 (Version 4)
Quarter: 2019Q2

REPORT INFORMATION
  Report Type: Report from Study
  Country: US (occurrence: US)
  Receive Date: 20190409
  Receipt Date: 20190611
  Transmission Date: 20190711
  Serious: Yes (Hospitalization, Other)
  Sender: FDA-Public Use
  Company Number: US-GILEAD-2019-0401176

PATIENT
  Age: 72 Year
  Sex: Male

DRUGS (4)
  1. AMBRISENTAN [Suspect]
     Active Substance: AMBRISENTAN
     Indication: PULMONARY HYPERTENSION
     Dosage: 10 MG, QD
     Route: 065
     Dates: start: 20170717
  2. AMBRISENTAN [Suspect]
     Active Substance: AMBRISENTAN
     Indication: THROMBOSIS
  3. AMBRISENTAN [Suspect]
     Active Substance: AMBRISENTAN
     Indication: LIVER DISORDER
  4. ELIQUIS [Suspect]
     Active Substance: APIXABAN
     Indication: THROMBOSIS
     Route: 065

REACTIONS (19)
  - Fatigue [Unknown]
  - Anaemia [Unknown]
  - Haemoglobin decreased [Not Recovered/Not Resolved]
  - Ill-defined disorder [Unknown]
  - Drug ineffective [Not Recovered/Not Resolved]
  - Gait inability [Unknown]
  - Pain in extremity [Unknown]
  - Asthenia [Unknown]
  - Gastric haemorrhage [Recovered/Resolved]
  - Peripheral swelling [Unknown]
  - Swelling [Unknown]
  - Thrombosis [Unknown]
  - Lethargy [Unknown]
  - Infection [Unknown]
  - Dyspnoea [Unknown]
  - Arthralgia [Unknown]
  - Joint stiffness [Unknown]
  - Oesophageal rupture [Unknown]
  - Limb discomfort [Unknown]
